FAERS Safety Report 9982835 (Version 1)
Quarter: 2014Q1

REPORT INFORMATION
  Report Type: Spontaneous
  Country: US (occurrence: None)
  Receive Date: 20140306
  Receipt Date: 20140306
  Transmission Date: 20141002
  Serious: No
  Sender: FDA-Public Use
  Company Number: None

PATIENT
  Age: 0 None
  Sex: 0

DRUGS (2)
  1. BUPIVACAINE [Suspect]
     Indication: SURGERY
     Route: 008
  2. BUPIVACAINE [Suspect]
     Indication: SURGERY
     Route: 008

REACTIONS (2)
  - Drug ineffective [None]
  - Product quality issue [None]
